FAERS Safety Report 18171039 (Version 2)
Quarter: 2020Q3

REPORT INFORMATION
  Report Type: Spontaneous
  Country: SI (occurrence: SI)
  Receive Date: 20200819
  Receipt Date: 20200910
  Transmission Date: 20201103
  Serious: Yes (Other)
  Sender: FDA-Public Use
  Company Number: SI-ASTRAZENECA-2020SF01530

PATIENT
  Sex: Female

DRUGS (4)
  1. DIAPREL [Concomitant]
     Active Substance: GLICLAZIDE
     Route: 065
  2. METFOGAMMA [Concomitant]
     Active Substance: METFORMIN HYDROCHLORIDE
     Route: 065
  3. FORXIGA [Suspect]
     Active Substance: DAPAGLIFLOZIN
     Route: 048
     Dates: start: 20200612
  4. NEORECORMON [Concomitant]
     Active Substance: ERYTHROPOIETIN
     Route: 065

REACTIONS (6)
  - Vertigo [Unknown]
  - Haemorrhoids [Unknown]
  - Genital pain [Unknown]
  - Dizziness [Unknown]
  - Pelvic abscess [Unknown]
  - Genital burning sensation [Unknown]

NARRATIVE: CASE EVENT DATE: 2020
